FAERS Safety Report 5188842-9 (Version None)
Quarter: 2006Q4

REPORT INFORMATION
  Report Type: 
  Country: None (occurrence: None)
  Receive Date: 20061215
  Receipt Date: 20061204
  Transmission Date: 20070319
  Serious: Yes (Hospitalization, Disabling, Other)
  Sender: FDA-Public Use
  Company Number: 2005094537

PATIENT
  Age: 39 Year
  Sex: Male

DRUGS (11)
  1. NEURONTIN [Suspect]
     Indication: MOVEMENT DISORDER
     Dosage: 1200 MG (400 MG, 3 IN 1 D)
  2. NEURONTIN [Suspect]
     Indication: RESTLESS LEGS SYNDROME
     Dosage: 1200 MG (400 MG, 3 IN 1 D)
  3. CARBAMAZEPINE [Concomitant]
  4. ACIPHEX [Concomitant]
  5. AMITRIPTYLINE HCL [Concomitant]
  6. HYDROCODONE BITARTRATE + ACETAMINOPHEN [Concomitant]
  7. HYOSCYAMINE (HYOSCYAMINE) [Concomitant]
  8. IBUPROFEN [Concomitant]
  9. ZANAFLEX [Concomitant]
  10. TRAMADOL HCL [Concomitant]
  11. SOMA [Concomitant]

REACTIONS (17)
  - CAUDA EQUINA SYNDROME [None]
  - CONDITION AGGRAVATED [None]
  - DEPRESSION [None]
  - DISTURBANCE IN ATTENTION [None]
  - DRUG INEFFECTIVE [None]
  - DURAL TEAR [None]
  - MEMORY IMPAIRMENT [None]
  - NEUROGENIC BLADDER [None]
  - NEUROGENIC BOWEL [None]
  - PAIN [None]
  - PATELLA FRACTURE [None]
  - PELVIC FRACTURE [None]
  - PULMONARY EMBOLISM [None]
  - RADIUS FRACTURE [None]
  - REFUSAL OF TREATMENT BY PATIENT [None]
  - SPINAL COMPRESSION FRACTURE [None]
  - SUICIDE ATTEMPT [None]
